FAERS Safety Report 23558110 (Version 1)
Quarter: 2024Q1

REPORT INFORMATION
  Report Type: Spontaneous
  Country: GB (occurrence: GB)
  Receive Date: 20240223
  Receipt Date: 20240223
  Transmission Date: 20240410
  Serious: Yes (Hospitalization)
  Sender: FDA-Public Use
  Company Number: GB-NEBO-PC013597

PATIENT
  Sex: Male
  Weight: 2.485 kg

DRUGS (1)
  1. IRON ISOMALTOSIDE 1000 [Suspect]
     Active Substance: IRON ISOMALTOSIDE 1000
     Indication: Product used for unknown indication
     Route: 050
     Dates: start: 20240103, end: 20240103

REACTIONS (2)
  - Premature baby [Recovered/Resolved]
  - Foetal monitoring abnormal [Unknown]

NARRATIVE: CASE EVENT DATE: 20240107
